FAERS Safety Report 11175981 (Version 2)
Quarter: 2015Q3

REPORT INFORMATION
  Report Type: Report from Study
  Country: US (occurrence: US)
  Receive Date: 20150609
  Receipt Date: 20150724
  Transmission Date: 20151125
  Serious: Yes (Death, Hospitalization)
  Sender: FDA-Public Use
  Company Number: US-INCYTE CORPORATION-2015IN002493

PATIENT
  Age: 65 Year
  Sex: Female
  Weight: 70 kg

DRUGS (3)
  1. REGORAFENIB [Suspect]
     Active Substance: REGORAFENIB
  2. INCB18424 (RUXOLITINIB) [Suspect]
     Active Substance: RUXOLITINIB
     Dosage: 160 MG, QD
     Route: 048
     Dates: start: 20150316, end: 20150524
  3. INCB18424 (RUXOLITINIB) [Suspect]
     Active Substance: RUXOLITINIB
     Indication: COLORECTAL CANCER METASTATIC
     Dosage: 15 MG, BID
     Route: 048
     Dates: start: 20150316, end: 20150524

REACTIONS (13)
  - Colorectal cancer metastatic [None]
  - Sepsis [Fatal]
  - Intestinal obstruction [None]
  - Abdominal pain [None]
  - Staphylococcus test positive [None]
  - Unresponsive to stimuli [None]
  - Nausea [None]
  - Malignant neoplasm progression [None]
  - General physical health deterioration [None]
  - Dehydration [None]
  - Vomiting [None]
  - Hypotension [None]
  - Diarrhoea [None]

NARRATIVE: CASE EVENT DATE: 20150527
